FAERS Safety Report 12343458 (Version 4)
Quarter: 2016Q4

REPORT INFORMATION
  Report Type: Spontaneous
  Country: KR (occurrence: KR)
  Receive Date: 20160506
  Receipt Date: 20161124
  Transmission Date: 20170207
  Serious: Yes (Hospitalization)
  Sender: FDA-Public Use
  Company Number: KR-TAKEDA-2016MPI001554

PATIENT
  Age: 78 Year
  Sex: Female
  Weight: 59 kg

DRUGS (106)
  1. OMEPRAZOLE. [Concomitant]
     Active Substance: OMEPRAZOLE
     Indication: PROPHYLAXIS
     Dosage: UNK
     Route: 065
  2. ATROVENT [Concomitant]
     Active Substance: IPRATROPIUM BROMIDE
     Indication: UPPER RESPIRATORY TRACT INFECTION
     Dosage: UNK
     Route: 065
  3. PREDNISONE. [Concomitant]
     Active Substance: PREDNISONE
     Indication: RHEUMATOID ARTHRITIS
     Dosage: UNK
     Route: 065
  4. PETHIDINE HCL [Concomitant]
     Indication: BIOPSY BONE MARROW
     Dosage: 25 MG, UNK
     Route: 030
     Dates: start: 20160204, end: 20160204
  5. TRIDOL [Concomitant]
     Active Substance: TRAMADOL HYDROCHLORIDE
     Dosage: 100 MG, UNK
     Route: 042
     Dates: start: 20160302, end: 20160302
  6. ULTRACET [Concomitant]
     Active Substance: ACETAMINOPHEN\TRAMADOL HYDROCHLORIDE
     Dosage: UNK, BID
     Route: 048
     Dates: start: 20160219, end: 20160226
  7. ULTRACET [Concomitant]
     Active Substance: ACETAMINOPHEN\TRAMADOL HYDROCHLORIDE
     Dosage: UNK, TID
     Route: 048
     Dates: start: 20160326
  8. SERENZAL [Concomitant]
     Indication: PERINEAL ERYTHEMA
     Dosage: 5 MG, BID
     Route: 048
     Dates: start: 20160219, end: 20160301
  9. ACETAMINOPHEN. [Concomitant]
     Active Substance: ACETAMINOPHEN
     Indication: PREMEDICATION
     Dosage: 650 MG, UNK
     Route: 048
     Dates: start: 20160219
  10. VELCADE [Suspect]
     Active Substance: BORTEZOMIB
     Indication: PLASMA CELL MYELOMA
     Dosage: 2 MG, UNK
     Route: 058
     Dates: start: 20160219, end: 20160222
  11. PREDNISONE. [Suspect]
     Active Substance: PREDNISONE
     Indication: PLASMA CELL MYELOMA
     Dosage: 95 MG, UNK
     Route: 048
     Dates: start: 20160220, end: 20160222
  12. ACTOCORTINA [Concomitant]
     Active Substance: HYDROCORTISONE SODIUM PHOSPHATE
     Indication: UPPER RESPIRATORY TRACT INFECTION
     Dosage: UNK
     Route: 065
  13. MEROPENEM TRIHYDRATE [Concomitant]
     Active Substance: MEROPENEM
     Indication: PNEUMONIA
     Dosage: 1 G, TID
     Route: 042
     Dates: start: 20160303, end: 20160317
  14. ITRACONAZOLE. [Concomitant]
     Active Substance: ITRACONAZOLE
     Indication: PNEUMONIA
     Dosage: 200 MG, BID
     Route: 042
     Dates: start: 20160305, end: 20160308
  15. DENOGAN [Concomitant]
     Active Substance: PROPACETAMOL HYDROCHLORIDE
     Indication: ANTIPYRESIS
     Dosage: 1 G, TID
     Route: 042
     Dates: start: 20160213, end: 20160314
  16. K-CONTIN [Concomitant]
     Dosage: 1200 MG, TID
     Route: 048
     Dates: start: 20160216, end: 20160218
  17. VACROVIR                           /00587301/ [Concomitant]
     Dosage: 1000 MG, UNK
     Route: 048
     Dates: start: 20160217, end: 20160301
  18. ZYLORIC [Concomitant]
     Active Substance: ALLOPURINOL
     Indication: PAIN PROPHYLAXIS
     Dosage: 300 MG, UNK
     Route: 048
     Dates: start: 20160219
  19. CEFEPIME [Concomitant]
     Active Substance: CEFEPIME HYDROCHLORIDE
     Indication: PNEUMONIA
     Dosage: 2 G, TID
     Route: 042
     Dates: start: 20160225, end: 20160303
  20. LACTULOSE. [Concomitant]
     Active Substance: LACTULOSE
     Indication: CONSTIPATION
     Dosage: 15 ML, UNK
     Route: 048
     Dates: start: 20160326
  21. DARATUMUMAB [Suspect]
     Active Substance: DARATUMUMAB
     Dosage: UNK
     Route: 042
  22. MELPHALAN [Suspect]
     Active Substance: MELPHALAN
     Dosage: 10 MG, UNK
     Route: 048
     Dates: start: 20160401, end: 20160404
  23. FLATORIL [Concomitant]
     Active Substance: CLEBOPRIDE MALATE\DIMETHICONE
     Indication: PYLORIC STENOSIS
     Dosage: UNK
     Route: 065
  24. ACTOCORTINA [Concomitant]
     Active Substance: HYDROCORTISONE SODIUM PHOSPHATE
     Indication: INFUSION RELATED REACTION
     Dosage: UNK
     Route: 065
  25. METHYLPREDNISOLONE. [Concomitant]
     Active Substance: METHYLPREDNISOLONE
     Indication: UPPER RESPIRATORY TRACT INFECTION
     Dosage: UNK
     Route: 065
  26. CALCIUM CARBONATE AND VITAMIN D [Concomitant]
     Active Substance: CALCIUM CARBONATE\VITAMIN D
     Indication: UPPER RESPIRATORY TRACT INFECTION
     Dosage: UNK
     Route: 065
  27. METHOTREXATE. [Concomitant]
     Active Substance: METHOTREXATE
     Indication: RHEUMATOID ARTHRITIS
     Dosage: UNK
     Route: 065
  28. POTASSIUM CHLORIDE. [Concomitant]
     Active Substance: POTASSIUM CHLORIDE
     Indication: BLOOD POTASSIUM INCREASED
     Dosage: 20 ML, UNK
     Route: 042
     Dates: start: 20160222, end: 20160223
  29. MG TNA [Concomitant]
     Indication: NUTRITIONAL SUPPLEMENTATION
     Dosage: 1000 ML, UNK
     Route: 042
     Dates: start: 20160302, end: 20160309
  30. GANCICLOVIR. [Concomitant]
     Active Substance: GANCICLOVIR
     Indication: PNEUMONIA
     Dosage: 500 MG, UNK
     Route: 042
     Dates: start: 20160301, end: 20160307
  31. LASIX [Concomitant]
     Active Substance: FUROSEMIDE
     Dosage: 40 MG, BID
     Route: 048
     Dates: start: 20160223, end: 20160223
  32. TABACTAM [Concomitant]
     Indication: INFECTION PROPHYLAXIS
     Dosage: 4.5 G, TID
     Route: 042
     Dates: start: 20160204, end: 20160213
  33. TRIDOL [Concomitant]
     Active Substance: TRAMADOL HYDROCHLORIDE
     Dosage: 50 MG, BID
     Route: 030
     Dates: start: 20160308, end: 20160309
  34. ULTRACET [Concomitant]
     Active Substance: ACETAMINOPHEN\TRAMADOL HYDROCHLORIDE
     Dosage: UNK, TID
     Route: 048
     Dates: start: 20160319, end: 20160325
  35. NORVASC [Concomitant]
     Active Substance: AMLODIPINE BESYLATE
     Indication: HYPERTENSION
     Dosage: 5 MG, UNK
     Route: 048
     Dates: start: 20160219
  36. SEROQUEL [Concomitant]
     Active Substance: QUETIAPINE FUMARATE
     Indication: INSOMNIA
     Dosage: 12.5 MG, UNK
     Route: 048
     Dates: start: 20160220, end: 20160408
  37. DALTEPARIN SODIUM [Concomitant]
     Active Substance: DALTEPARIN SODIUM
     Indication: ANTICOAGULANT THERAPY
     Dosage: UNK
     Route: 058
     Dates: start: 20160226, end: 20160305
  38. TWYNSTA [Concomitant]
     Active Substance: AMLODIPINE BESYLATE\TELMISARTAN
     Indication: HYPERTENSION
     Dosage: 5 MG, UNK
     Route: 048
     Dates: start: 20160331, end: 20160331
  39. ATROVENT UDV [Concomitant]
     Active Substance: IPRATROPIUM BROMIDE
     Indication: DYSPNOEA
     Dosage: 500 ?G, UNK
     Route: 055
     Dates: start: 20160223, end: 20160223
  40. VELCADE [Suspect]
     Active Substance: BORTEZOMIB
     Dosage: 1.6 MG, UNK
     Route: 058
     Dates: start: 20160830
  41. PREDNISONE. [Suspect]
     Active Substance: PREDNISONE
     Dosage: 70 MG, UNK
     Route: 048
     Dates: start: 20160401, end: 20160404
  42. LORAZEPAM. [Concomitant]
     Active Substance: LORAZEPAM
     Indication: PROPHYLAXIS
     Dosage: UNK
     Route: 065
  43. FOLIC ACID. [Concomitant]
     Active Substance: FOLIC ACID
     Indication: UPPER RESPIRATORY TRACT INFECTION
     Dosage: UNK
     Route: 065
  44. LASIX [Concomitant]
     Active Substance: FUROSEMIDE
     Dosage: 40 MG, UNK
     Route: 048
     Dates: start: 20160222, end: 20160222
  45. PETHIDINE HCL [Concomitant]
     Indication: PROPHYLAXIS
     Dosage: 25 MG, UNK
     Route: 030
     Dates: start: 20160204, end: 20160204
  46. DENOGAN [Concomitant]
     Active Substance: PROPACETAMOL HYDROCHLORIDE
     Dosage: 2 G, UNK
     Route: 042
     Dates: start: 20160204, end: 20160304
  47. K-CONTIN [Concomitant]
     Dosage: 600 MG, UNK
     Route: 048
     Dates: start: 20160221, end: 20160221
  48. ULTRACET [Concomitant]
     Active Substance: ACETAMINOPHEN\TRAMADOL HYDROCHLORIDE
     Indication: BACK PAIN
     Dosage: UNK, TID
     Route: 048
     Dates: start: 20160227, end: 20160301
  49. DEXAMETHASONE                      /00016002/ [Concomitant]
     Active Substance: DEXAMETHASONE SODIUM PHOSPHATE
     Indication: PREMEDICATION
     Dosage: 20 MG, UNK
     Route: 042
     Dates: start: 20160219
  50. FLUCONAZOLE. [Concomitant]
     Active Substance: FLUCONAZOLE
     Indication: INFECTION PROPHYLAXIS
     Dosage: 200 MG, UNK
     Route: 048
     Dates: start: 20160219
  51. URSODESOXYCHOLIC ACID [Concomitant]
     Active Substance: URSODIOL
     Indication: LIVER FUNCTION TEST INCREASED
     Dosage: 100 MG, UNK
     Route: 048
     Dates: start: 20160224, end: 20160301
  52. FENTANYL CITRATE. [Concomitant]
     Active Substance: FENTANYL CITRATE
     Indication: PAIN
     Dosage: 0.1 MG, UNK
     Route: 042
     Dates: start: 20160226, end: 20160301
  53. TAPOCIN [Concomitant]
     Indication: PNEUMONIA
     Dosage: 400 MG, UNK
     Route: 042
     Dates: start: 20160229, end: 20160317
  54. VELCADE [Suspect]
     Active Substance: BORTEZOMIB
     Dosage: 1.6 MG, UNK
     Route: 058
     Dates: start: 20160401
  55. DENOGAN [Concomitant]
     Active Substance: PROPACETAMOL HYDROCHLORIDE
     Indication: PYREXIA
     Dosage: 2 G, UNK
     Route: 042
     Dates: start: 20160305, end: 20160305
  56. TRIDOL [Concomitant]
     Active Substance: TRAMADOL HYDROCHLORIDE
     Indication: PAIN
     Dosage: 50 MG, UNK
     Route: 042
     Dates: start: 20160209, end: 20160302
  57. TRIDOL [Concomitant]
     Active Substance: TRAMADOL HYDROCHLORIDE
     Dosage: 50 MG, QID
     Route: 030
     Dates: start: 20160303, end: 20160307
  58. CIPROCTAN [Concomitant]
     Dosage: 500 MG, UNK
     Route: 048
     Dates: start: 20160224, end: 20160225
  59. ULTRACET [Concomitant]
     Active Substance: ACETAMINOPHEN\TRAMADOL HYDROCHLORIDE
     Dosage: UNK
     Route: 048
     Dates: start: 20160217, end: 20160217
  60. NICARDIPINE [Concomitant]
     Active Substance: NICARDIPINE
     Indication: HYPERTENSION
     Dosage: 24 MG, UNK
     Route: 042
     Dates: start: 20160223, end: 20160309
  61. CARDUUS MARIANUS [Concomitant]
     Indication: LIVER FUNCTION TEST INCREASED
     Dosage: UNK, TID
     Route: 048
     Dates: start: 20160224, end: 20160301
  62. CODEINE PHOSPHATE [Concomitant]
     Active Substance: CODEINE PHOSPHATE
     Indication: COUGH
     Dosage: 20 MG, BID
     Route: 048
     Dates: start: 20160225, end: 20160301
  63. HALOPERIDOL. [Concomitant]
     Active Substance: HALOPERIDOL
     Indication: DELIRIUM
     Dosage: 2.5 MG, UNK
     Route: 042
     Dates: start: 20160301, end: 20160303
  64. DARATUMUMAB [Suspect]
     Active Substance: DARATUMUMAB
     Dosage: UNK
     Route: 042
  65. POLARAMINE [Concomitant]
     Active Substance: DEXCHLORPHENIRAMINE MALEATE
     Indication: INFUSION RELATED REACTION
     Dosage: UNK
     Route: 065
  66. ALDOCUMAR [Concomitant]
     Active Substance: WARFARIN SODIUM
     Indication: UPPER RESPIRATORY TRACT INFECTION
     Dosage: UNK
     Route: 065
  67. PREDNISONA [Concomitant]
     Active Substance: PREDNISONE
     Indication: UPPER RESPIRATORY TRACT INFECTION
     Dosage: UNK
     Route: 065
  68. POTASSIUM CHLORIDE. [Concomitant]
     Active Substance: POTASSIUM CHLORIDE
     Dosage: 20 ML, UNK
     Route: 042
     Dates: start: 20160308, end: 20160313
  69. DENOGAN [Concomitant]
     Active Substance: PROPACETAMOL HYDROCHLORIDE
     Dosage: 3 G, BID
     Route: 042
     Dates: start: 20160229, end: 20160303
  70. CIPROCTAN [Concomitant]
     Dosage: 500 MG, UNK
     Route: 048
     Dates: start: 20160401
  71. VACROVIR                           /00587301/ [Concomitant]
     Indication: INFECTION PROPHYLAXIS
     Dosage: 500 MG, BID
     Route: 048
     Dates: start: 20160325, end: 20160331
  72. PANORIN [Concomitant]
     Dosage: 90 MG, UNK
     Route: 042
     Dates: start: 20160401, end: 20160401
  73. NUTRIFLEX LIPID PERI [Concomitant]
     Indication: NUTRITIONAL SUPPLEMENTATION
     Dosage: 1250 ML, UNK
     Route: 042
     Dates: start: 20160310, end: 20160313
  74. VELCADE [Suspect]
     Active Substance: BORTEZOMIB
     Dosage: 1.6 MG, UNK
     Route: 058
     Dates: start: 20160408
  75. VELCADE [Suspect]
     Active Substance: BORTEZOMIB
     Dosage: 1.6 MG, UNK
     Route: 058
     Dates: start: 20160422
  76. VELCADE [Suspect]
     Active Substance: BORTEZOMIB
     Dosage: 1.6 MG, UNK
     Route: 058
     Dates: start: 20160429
  77. DARATUMUMAB [Suspect]
     Active Substance: DARATUMUMAB
     Indication: PLASMA CELL MYELOMA
     Dosage: 944 MG, UNK
     Route: 042
     Dates: start: 20160219, end: 20160219
  78. SEGURIL [Concomitant]
     Active Substance: FUROSEMIDE
     Indication: PROPHYLAXIS
     Dosage: UNK
     Route: 065
  79. SEGURIL [Concomitant]
     Active Substance: FUROSEMIDE
     Indication: INFUSION RELATED REACTION
     Dosage: UNK
     Route: 065
  80. PARACETAMOL [Concomitant]
     Active Substance: ACETAMINOPHEN
     Indication: OSTEOARTHRITIS
     Dosage: UNK
     Route: 065
  81. ITRACONAZOLE. [Concomitant]
     Active Substance: ITRACONAZOLE
     Dosage: 10 MG, UNK
     Route: 042
     Dates: start: 20160314, end: 20160409
  82. LEVOFLOXACIN. [Concomitant]
     Active Substance: LEVOFLOXACIN
     Indication: PNEUMONIA
     Dosage: 750 MG, UNK
     Route: 042
     Dates: start: 20160226, end: 20160303
  83. LASIX [Concomitant]
     Active Substance: FUROSEMIDE
     Dosage: 20 MG, UNK
     Route: 048
     Dates: start: 20160312, end: 20160317
  84. CIPROCTAN [Concomitant]
     Indication: PREMEDICATION
     Dosage: 500 MG, BID
     Route: 048
     Dates: start: 20160219, end: 20160223
  85. VACROVIR                           /00587301/ [Concomitant]
     Dosage: 250 MG, UNK
     Route: 048
     Dates: start: 20160401
  86. PANORIN [Concomitant]
     Indication: PROPHYLAXIS
     Dosage: 90 MG, BID
     Route: 042
     Dates: start: 20160219, end: 20160219
  87. PANTOPRAZOLE [Concomitant]
     Active Substance: PANTOPRAZOLE SODIUM
     Indication: GASTROINTESTINAL DISORDER THERAPY
     Dosage: 40 MG, UNK
     Route: 042
     Dates: start: 20160302, end: 20160314
  88. MICAFUNGIN SODIUM [Concomitant]
     Active Substance: MICAFUNGIN SODIUM
     Indication: PNEUMONIA
     Dosage: 50 MG, UNK
     Route: 042
     Dates: start: 20160309, end: 20160310
  89. COMBIFLEX PERI [Concomitant]
     Indication: NUTRITIONAL SUPPLEMENTATION
     Dosage: 1100 ML, UNK
     Route: 042
     Dates: start: 20160315, end: 20160331
  90. VELCADE [Suspect]
     Active Substance: BORTEZOMIB
     Dosage: 1.6 MG, UNK
     Route: 058
     Dates: start: 20160511
  91. VELCADE [Suspect]
     Active Substance: BORTEZOMIB
     Dosage: 1.6 MG, UNK
     Route: 058
     Dates: start: 20160518
  92. DARATUMUMAB [Suspect]
     Active Substance: DARATUMUMAB
     Dosage: UNK
     Route: 042
  93. MELPHALAN [Suspect]
     Active Substance: MELPHALAN
     Indication: PLASMA CELL MYELOMA
     Dosage: 14 MG, UNK
     Route: 048
     Dates: start: 20160219, end: 20160222
  94. VENTOLIN [Concomitant]
     Active Substance: ALBUTEROL SULFATE
     Indication: UPPER RESPIRATORY TRACT INFECTION
     Dosage: UNK
     Route: 065
  95. TELMISARTAN. [Concomitant]
     Active Substance: TELMISARTAN
     Indication: HYPERTENSION
     Dosage: UNK
     Route: 065
  96. POTASSIUM CHLORIDE. [Concomitant]
     Active Substance: POTASSIUM CHLORIDE
     Dosage: 160 ML, UNK
     Route: 042
     Dates: start: 20160401, end: 20160409
  97. ITRACONAZOLE. [Concomitant]
     Active Substance: ITRACONAZOLE
     Dosage: UNK
     Route: 048
     Dates: start: 20160311
  98. PERINDOPRIL TERT-BUTYLAMINE [Concomitant]
     Active Substance: PERINDOPRIL ERBUMINE
     Indication: HYPERTENSION
     Dosage: 2 MG, UNK
     Route: 048
     Dates: start: 20160226, end: 20160301
  99. LASIX [Concomitant]
     Active Substance: FUROSEMIDE
     Indication: FLUID RETENTION
     Dosage: 10 MG, UNK
     Route: 042
     Dates: start: 20160227, end: 20160227
  100. PIPRINHYDRINATE [Concomitant]
     Indication: PREMEDICATION
     Dosage: 3 MG, UNK
     Route: 042
     Dates: start: 20160219
  101. CIPROCTAN [Concomitant]
     Indication: INFECTION PROPHYLAXIS
     Dosage: 400 MG, BID
     Route: 042
     Dates: start: 20160216, end: 20160218
  102. K-CONTIN [Concomitant]
     Indication: BLOOD POTASSIUM INCREASED
     Dosage: 1200 MG, TID
     Route: 048
     Dates: start: 20160223, end: 20160301
  103. K-CONTIN [Concomitant]
     Dosage: 600 MG, BID
     Route: 048
     Dates: start: 20160316, end: 20160318
  104. SPIRONOLACTON [Concomitant]
     Active Substance: SPIRONOLACTONE
     Indication: FLUID RETENTION
     Dosage: 25 MG, UNK
     Route: 048
     Dates: start: 20160223, end: 20160225
  105. LENOGRASTIM [Concomitant]
     Active Substance: LENOGRASTIM
     Indication: NEUTROPHIL COUNT DECREASED
     Dosage: 250 ?G, UNK
     Route: 042
     Dates: start: 20160320, end: 20160320
  106. PREGABALIN. [Concomitant]
     Active Substance: PREGABALIN
     Indication: BACK PAIN
     Dosage: 75 MG, UNK
     Route: 048
     Dates: start: 20160322

REACTIONS (10)
  - Liver function test increased [Unknown]
  - Delirium [Unknown]
  - Pneumonia [Recovered/Resolved]
  - Insomnia [Unknown]
  - Constipation [Unknown]
  - Neutrophil count decreased [Unknown]
  - Fluid retention [Unknown]
  - Perineal erythema [Unknown]
  - Dyspepsia [Unknown]
  - Hypertension [Unknown]

NARRATIVE: CASE EVENT DATE: 20160220
